FAERS Safety Report 11452648 (Version 1)
Quarter: 2015Q3

REPORT INFORMATION
  Report Type: Spontaneous
  Country: US (occurrence: US)
  Receive Date: 20150831
  Receipt Date: 20150831
  Transmission Date: 20151125
  Serious: No
  Sender: FDA-Public Use
  Company Number: US-ELI_LILLY_AND_COMPANY-US200910003389

PATIENT
  Sex: Female

DRUGS (1)
  1. CYMBALTA [Suspect]
     Active Substance: DULOXETINE HYDROCHLORIDE
     Dosage: 30 MG, UNK
     Dates: start: 2007

REACTIONS (7)
  - Bipolar disorder [Unknown]
  - Hallucination, auditory [Unknown]
  - Agitation [Unknown]
  - Abdominal discomfort [Unknown]
  - Influenza like illness [Unknown]
  - Abnormal dreams [Unknown]
  - Fatigue [Unknown]
